FAERS Safety Report 25700016 (Version 1)
Quarter: 2025Q3

REPORT INFORMATION
  Report Type: Spontaneous
  Country: US (occurrence: None)
  Receive Date: 20250818
  Receipt Date: 20250818
  Transmission Date: 20251021
  Serious: Yes (Death)
  Sender: FDA-CTU
  Company Number: None

PATIENT
  Age: 57 Year
  Sex: Female

DRUGS (2)
  1. APIXABAN [Suspect]
     Active Substance: APIXABAN
  2. APIXABAN [Concomitant]
     Active Substance: APIXABAN

REACTIONS (4)
  - Haematuria [None]
  - Hydroureter [None]
  - Hydronephrosis [None]
  - Haemoglobin decreased [None]

NARRATIVE: CASE EVENT DATE: 20240716
